FAERS Safety Report 26108346 (Version 1)
Quarter: 2025Q4

REPORT INFORMATION
  Report Type: Spontaneous
  Country: IR (occurrence: IR)
  Receive Date: 20251201
  Receipt Date: 20251201
  Transmission Date: 20260117
  Serious: Yes (Other)
  Sender: EXELA PHARMA SCIENCES
  Company Number: IR-EXELAPHARMA-2025EXLA00218

PATIENT
  Age: 44 Year
  Sex: Male

DRUGS (1)
  1. TRANEXAMIC ACID [Suspect]
     Active Substance: TRANEXAMIC ACID
     Indication: Haemoptysis
     Dosage: ENDOBRONCHIAL

REACTIONS (2)
  - Serotonin syndrome [Unknown]
  - Off label use [Unknown]
